FAERS Safety Report 10358331 (Version 9)
Quarter: 2014Q4

REPORT INFORMATION
  Report Type: Spontaneous
  Country: US (occurrence: None)
  Receive Date: 20140730
  Receipt Date: 20141028
  Transmission Date: 20150528
  Serious: Yes (Hospitalization)
  Sender: FDA-Public Use
  Company Number: UNT-2014-004401

PATIENT
  Age: 69 Year
  Sex: Male
  Weight: 101.6 kg

DRUGS (3)
  1. LETAIRIS [Suspect]
     Active Substance: AMBRISENTAN
     Indication: PRODUCT USED FOR UNKNOWN INDICATION
     Dates: start: 20120905
  2. ORENITRAM [Suspect]
     Active Substance: TREPROSTINIL
     Indication: PULMONARY ARTERIAL HYPERTENSION
     Route: 048
     Dates: start: 20140625
  3. ADCIRCA (TADALAFIL) UNKNOWN [Concomitant]

REACTIONS (19)
  - Musculoskeletal pain [None]
  - Back pain [None]
  - Syncope [None]
  - Right ventricular systolic pressure increased [None]
  - Dyspnoea [None]
  - Abdominal discomfort [None]
  - Pulmonary arterial hypertension [None]
  - Nausea [None]
  - Pancreatitis [None]
  - Vomiting [None]
  - Chest pain [None]
  - Dizziness [None]
  - Exercise tolerance decreased [None]
  - Drug intolerance [None]
  - Malaise [None]
  - Nasal congestion [None]
  - Myalgia [None]
  - Fatigue [None]
  - Pancreatitis chronic [None]

NARRATIVE: CASE EVENT DATE: 2014
